FAERS Safety Report 21503577 (Version 1)
Quarter: 2022Q4

REPORT INFORMATION
  Report Type: Report from Study
  Country: DE (occurrence: None)
  Receive Date: 20221025
  Receipt Date: 20221025
  Transmission Date: 20230113
  Serious: Yes (Hospitalization)
  Sender: FDA-Public Use
  Company Number: DE-Eisai Medical Research-EC-2022-126408

PATIENT
  Age: 72 Year
  Sex: Male

DRUGS (1)
  1. LENVIMA [Suspect]
     Active Substance: LENVATINIB
     Indication: Thyroid cancer
     Route: 048
     Dates: start: 201802, end: 202008

REACTIONS (2)
  - Hypertensive crisis [Unknown]
  - Proteinuria [Unknown]

NARRATIVE: CASE EVENT DATE: 20200801
